FAERS Safety Report 9538596 (Version 1)
Quarter: 2013Q2

REPORT INFORMATION
  Report Type: Spontaneous
  Country: US (occurrence: None)
  Receive Date: 20130507
  Receipt Date: 20130507
  Transmission Date: 20140414
  Serious: No
  Sender: FDA-Public Use
  Company Number: PHEH2013US001606

PATIENT
  Age: 44 Year
  Sex: Female
  Weight: 69.8 kg

DRUGS (9)
  1. AFINITOR (RAD) TABLET, 10MG [Suspect]
     Dosage: 10 MG, QD, ORAL
     Route: 048
  2. EXEMESTANE (EXEMESTANE) [Concomitant]
  3. VICODIN ES (HYDROCODONE BITARTRATE PARACETAMOL) [Concomitant]
  4. MAGNESIUM (MAGNESIUM) [Concomitant]
  5. VITAMIN D (ERGOCALCIFEROL) [Concomitant]
  6. CALCIUM (CALCIUM) [Concomitant]
  7. ZINC (ZINC) [Concomitant]
  8. ASTRAGALUS (ASTRAGALUS GUMMIFER) [Concomitant]
  9. MELATONIN (MELATONIN) [Concomitant]

REACTIONS (4)
  - Stomatitis [None]
  - Decreased appetite [None]
  - Nausea [None]
  - Diarrhoea [None]
